FAERS Safety Report 16894324 (Version 1)
Quarter: 2019Q4

REPORT INFORMATION
  Report Type: Spontaneous
  Country: US (occurrence: US)
  Receive Date: 20191008
  Receipt Date: 20191008
  Transmission Date: 20200122
  Serious: No
  Sender: FDA-Public Use
  Company Number: US-INDIVIOR US-INDV-113522-2018

PATIENT
  Sex: Male
  Weight: 61.68 kg

DRUGS (1)
  1. SUBOXONE [Suspect]
     Active Substance: BUPRENORPHINE HYDROCHLORIDE\NALOXONE HYDROCHLORIDE
     Indication: DRUG DEPENDENCE
     Dosage: A FILM CUT INTO HALF, ONE HALF MORNING AND ONE HALF NIGHT
     Route: 065

REACTIONS (4)
  - Weight decreased [Not Recovered/Not Resolved]
  - Substance abuse [Unknown]
  - Muscle atrophy [Not Recovered/Not Resolved]
  - Adverse event [Not Recovered/Not Resolved]

NARRATIVE: CASE EVENT DATE: 2018
